APPROVED DRUG PRODUCT: KLOR-CON
Active Ingredient: POTASSIUM CHLORIDE
Strength: 10MEQ
Dosage Form/Route: CAPSULE, EXTENDED RELEASE;ORAL
Application: A203106 | Product #002
Applicant: UPSHER SMITH LABORATORIES LLC
Approved: Jul 10, 2015 | RLD: No | RS: No | Type: DISCN